FAERS Safety Report 9412899 (Version 1)
Quarter: 2013Q2

REPORT INFORMATION
  Report Type: Spontaneous
  Country: GB (occurrence: None)
  Receive Date: 20130523
  Receipt Date: 20130523
  Transmission Date: 20140414
  Serious: Yes (Other)
  Sender: FDA-Public Use
  Company Number: AUR-APL-2012-03864

PATIENT
  Sex: Female

DRUGS (1)
  1. MIRTAZAPINE (MIRTAZAPINE) [Suspect]
     Indication: PRODUCT USED FOR UNKNOWN INDICATION

REACTIONS (12)
  - Drug withdrawal syndrome [None]
  - Sweating fever [None]
  - Dry throat [None]
  - Dysphagia [None]
  - Arthralgia [None]
  - Depressed mood [None]
  - Insomnia [None]
  - Decreased appetite [None]
  - Therapy cessation [None]
  - Eye swelling [None]
  - Confusional state [None]
  - Suicidal ideation [None]
